FAERS Safety Report 7581339-8 (Version None)
Quarter: 2011Q2

REPORT INFORMATION
  Report Type: 
  Country: None (occurrence: None)
  Receive Date: 20110629
  Receipt Date: 20110622
  Transmission Date: 20111010
  Serious: Yes (Death)
  Sender: FDA-Public Use
  Company Number: JP-CELGENEUS-087-50794-11063437

PATIENT
  Age: 80 Year
  Sex: Male

DRUGS (4)
  1. HYDROXYUREA [Concomitant]
     Route: 065
  2. VIDAZA [Suspect]
     Dosage: 100 MILLIGRAM
     Route: 041
     Dates: start: 20110501, end: 20110501
  3. VIDAZA [Suspect]
     Dosage: 100 MILLIGRAM
     Route: 041
     Dates: start: 20110331, end: 20110406
  4. VIDAZA [Suspect]
     Dosage: 100 MILLIGRAM
     Route: 041
     Dates: start: 20110609, end: 20110613

REACTIONS (1)
  - CEREBRAL HAEMORRHAGE [None]
